FAERS Safety Report 15329850 (Version 1)
Quarter: 2018Q3

REPORT INFORMATION
  Report Type: Spontaneous
  Country: US (occurrence: US)
  Receive Date: 20180824
  Receipt Date: 20180824
  Transmission Date: 20181010
  Serious: Yes (Disabling)
  Sender: FDA-Public Use
  Company Number: None

PATIENT
  Age: 54 Year
  Sex: Female
  Weight: 68.85 kg

DRUGS (10)
  1. LIPITOR [Suspect]
     Active Substance: ATORVASTATIN CALCIUM
  2. ZANTAC [Concomitant]
     Active Substance: RANITIDINE HYDROCHLORIDE
  3. CIMZIA [Suspect]
     Active Substance: CERTOLIZUMAB PEGOL
     Indication: COLITIS
  4. 6MP [Concomitant]
     Active Substance: MERCAPTOPURINE
  5. CIMZIA [Suspect]
     Active Substance: CERTOLIZUMAB PEGOL
     Indication: CROHN^S DISEASE
     Dosage: ?          QUANTITY:1 DF DOSAGE FORM;?
     Route: 030
     Dates: start: 20150812, end: 20180810
  6. LOPRESSER [Concomitant]
  7. ACEPHIX [Concomitant]
  8. ENTCOURT [Concomitant]
  9. IRON (OTC) [Concomitant]
  10. BABY ASPRIN [Concomitant]
     Active Substance: ASPIRIN

REACTIONS (3)
  - Arthralgia [None]
  - Pyrexia [None]
  - Myalgia [None]

NARRATIVE: CASE EVENT DATE: 20180810
